FAERS Safety Report 14205854 (Version 1)
Quarter: 2017Q4

REPORT INFORMATION
  Report Type: Spontaneous
  Country: US (occurrence: US)
  Receive Date: 20171120
  Receipt Date: 20171120
  Transmission Date: 20180321
  Serious: Yes (Other)
  Sender: FDA-Public Use
  Company Number: US-DSJP-DSU-2017-148767

PATIENT

DRUGS (2)
  1. BENICAR HCT [Suspect]
     Active Substance: HYDROCHLOROTHIAZIDE\OLMESARTAN MEDOXOMIL
     Indication: HYPERTENSION
     Dosage: 20-12.5 MG, QD
     Route: 048
     Dates: start: 20051207, end: 20170509
  2. BENICAR [Suspect]
     Active Substance: OLMESARTAN MEDOXOMIL
     Indication: HYPERTENSION
     Dosage: 20 MG, QD
     Route: 048
     Dates: start: 20051207, end: 20170509

REACTIONS (9)
  - Large intestine polyp [Recovered/Resolved]
  - Diarrhoea [Recovered/Resolved]
  - Diverticulitis [Unknown]
  - Gastrooesophageal reflux disease [Not Recovered/Not Resolved]
  - Gastritis [Unknown]
  - Weight decreased [Recovered/Resolved]
  - Hiatus hernia [Unknown]
  - Gastric disorder [Unknown]
  - Diverticulum [Unknown]

NARRATIVE: CASE EVENT DATE: 2007
